FAERS Safety Report 9654979 (Version 1)
Quarter: 2013Q4

REPORT INFORMATION
  Report Type: Spontaneous
  Country: US (occurrence: US)
  Receive Date: 20131029
  Receipt Date: 20131029
  Transmission Date: 20140711
  Serious: No
  Sender: FDA-Public Use
  Company Number: US-PURDUE-USA-2012-0092122

PATIENT
  Sex: Female

DRUGS (2)
  1. OXYCONTIN (NDA 22-272) [Suspect]
     Indication: CYSTITIS INTERSTITIAL
     Dosage: 60 MG, BID
     Route: 048
     Dates: start: 2012
  2. OXYCODONE HCL CR TABLETS (SIMILAR TO NDA 20-553) [Concomitant]
     Indication: BREAKTHROUGH PAIN
     Dosage: 10 MG, UNK
     Route: 048

REACTIONS (5)
  - Cystitis interstitial [Unknown]
  - Breakthrough pain [Unknown]
  - Drug ineffective [Unknown]
  - Drug effect decreased [Not Recovered/Not Resolved]
  - Nausea [Unknown]
